FAERS Safety Report 24587478 (Version 3)
Quarter: 2025Q4

REPORT INFORMATION
  Report Type: Report from Study
  Country: CA (occurrence: CA)
  Receive Date: 20241107
  Receipt Date: 20251030
  Transmission Date: 20260117
  Serious: Yes (Other)
  Sender: TAKEDA
  Company Number: CA-TAKEDA-2024TUS110314

PATIENT
  Age: 17 Year
  Sex: Male
  Weight: 24.6 kg

DRUGS (4)
  1. HUMAN IMMUNOGLOBULIN G\HYALURONIDASE RECOMBINANT HUMAN [Suspect]
     Active Substance: HUMAN IMMUNOGLOBULIN G\HYALURONIDASE (HUMAN RECOMBINANT)
     Indication: Primary immunodeficiency syndrome
     Dosage: 10 GRAM, Q4WEEKS
     Dates: start: 20240916
  2. HUMAN IMMUNOGLOBULIN G\HYALURONIDASE RECOMBINANT HUMAN [Suspect]
     Active Substance: HUMAN IMMUNOGLOBULIN G\HYALURONIDASE (HUMAN RECOMBINANT)
     Dosage: 10 GRAM, Q4WEEKS
  3. PREVACID [Concomitant]
     Active Substance: LANSOPRAZOLE
     Dosage: 30 MILLIGRAM, QD
  4. TOPICORT [Concomitant]
     Active Substance: DESOXIMETASONE
     Dosage: 0.5 MILLIGRAM

REACTIONS (11)
  - Zhu-Tokita-Takenouchi-Kim syndrome [Not Recovered/Not Resolved]
  - Gastrointestinal haemorrhage [Unknown]
  - Galactosaemia [Not Recovered/Not Resolved]
  - Drooling [Not Recovered/Not Resolved]
  - Hypertension [Not Recovered/Not Resolved]
  - Nasopharyngitis [Recovered/Resolved]
  - Delayed puberty [Unknown]
  - Injection site erythema [Unknown]
  - Salivary hypersecretion [Unknown]
  - Splinter [Unknown]
  - B-lymphocyte abnormalities [Unknown]

NARRATIVE: CASE EVENT DATE: 20250901
